FAERS Safety Report 14035578 (Version 2)
Quarter: 2017Q4

REPORT INFORMATION
  Report Type: Spontaneous
  Country: US (occurrence: US)
  Receive Date: 20171003
  Receipt Date: 20171108
  Transmission Date: 20180321
  Serious: Yes (Death)
  Sender: FDA-Public Use
  Company Number: US-EAGLE PHARMACEUTICALS, INC.-US-2017EAG000085

PATIENT

DRUGS (2)
  1. RITUXAN [Concomitant]
     Active Substance: RITUXIMAB
     Indication: LYMPHOMA
     Dosage: UNK
  2. BENDEKA [Suspect]
     Active Substance: BENDAMUSTINE HYDROCHLORIDE
     Indication: LYMPHOMA
     Dosage: UNK
     Dates: start: 20160712, end: 20161010

REACTIONS (4)
  - Bone neoplasm [Fatal]
  - Liver disorder [Fatal]
  - Hepatic cancer [Fatal]
  - Lung adenocarcinoma stage IV [Fatal]

NARRATIVE: CASE EVENT DATE: 201709
